FAERS Safety Report 11466336 (Version 2)
Quarter: 2015Q3

REPORT INFORMATION
  Report Type: Spontaneous
  Country: US (occurrence: US)
  Receive Date: 20150907
  Receipt Date: 20150917
  Transmission Date: 20151125
  Serious: No
  Sender: FDA-Public Use
  Company Number: US-009507513-1504USA015422

PATIENT
  Age: 48 Year
  Sex: Female

DRUGS (6)
  1. CLINDAMYCIN [Concomitant]
     Active Substance: CLINDAMYCIN\CLINDAMYCIN PHOSPHATE
     Indication: ENDOPHTHALMITIS
     Dosage: 1 MG PER 0.1 ML, INTRAVITREAL, UNK
     Route: 031
  2. AMIKACIN [Concomitant]
     Active Substance: AMIKACIN
     Indication: ENDOPHTHALMITIS
     Dosage: 400 UG PER 0.1 ML, INTRAVITREAL, UNK
     Route: 031
  3. AMIKACIN [Concomitant]
     Active Substance: AMIKACIN
     Indication: STAPHYLOCOCCAL INFECTION
  4. DAPTOMYCIN. [Suspect]
     Active Substance: DAPTOMYCIN
     Indication: ENDOPHTHALMITIS
     Dosage: UNK
     Route: 042
  5. DAPTOMYCIN. [Suspect]
     Active Substance: DAPTOMYCIN
     Indication: STAPHYLOCOCCAL INFECTION
  6. CLINDAMYCIN [Concomitant]
     Active Substance: CLINDAMYCIN\CLINDAMYCIN PHOSPHATE
     Indication: STAPHYLOCOCCAL INFECTION

REACTIONS (1)
  - Off label use [Unknown]
